FAERS Safety Report 11639846 (Version 11)
Quarter: 2017Q4

REPORT INFORMATION
  Report Type: Report from Study
  Country: US (occurrence: US)
  Receive Date: 20151019
  Receipt Date: 20171120
  Transmission Date: 20180320
  Serious: Yes (Hospitalization)
  Sender: FDA-Public Use
  Company Number: US-EISAI MEDICAL RESEARCH-EC-2015-010809

PATIENT
  Age: 66 Year
  Sex: Male
  Weight: 96.2 kg

DRUGS (33)
  1. LOPERAMIDE [Concomitant]
     Active Substance: LOPERAMIDE
  2. HYDROCODONE-ACETAMINOPHEN [Concomitant]
     Active Substance: ACETAMINOPHEN\HYDROCODONE
  3. FLUTICASONE PROPIONATE. [Concomitant]
     Active Substance: FLUTICASONE PROPIONATE
  4. LENVIMA [Suspect]
     Active Substance: LENVATINIB
     Route: 048
     Dates: start: 2017
  5. VENTOLIN [Concomitant]
     Active Substance: ALBUTEROL SULFATE
  6. SYNTHROID [Concomitant]
     Active Substance: LEVOTHYROXINE SODIUM
  7. TOPROL XL [Concomitant]
     Active Substance: METOPROLOL SUCCINATE
  8. PRAVASTATIN SODIUM. [Concomitant]
     Active Substance: PRAVASTATIN SODIUM
  9. VIAGRA [Concomitant]
     Active Substance: SILDENAFIL CITRATE
  10. ONDANSETRON [Concomitant]
     Active Substance: ONDANSETRON
  11. PREDNISONE. [Concomitant]
     Active Substance: PREDNISONE
  12. FAMOTIDINE. [Concomitant]
     Active Substance: FAMOTIDINE
  13. LABETALOL HCL [Concomitant]
     Active Substance: LABETALOL HYDROCHLORIDE
  14. FINASTERIDE. [Concomitant]
     Active Substance: FINASTERIDE
  15. BENZONATATE. [Concomitant]
     Active Substance: BENZONATATE
  16. AMLODIPINE [Concomitant]
     Active Substance: AMLODIPINE BESYLATE
  17. LENVIMA [Suspect]
     Active Substance: LENVATINIB
     Indication: THYROID CANCER
     Route: 048
     Dates: start: 20150909, end: 20151026
  18. LENVIMA [Suspect]
     Active Substance: LENVATINIB
     Route: 048
     Dates: end: 201710
  19. AVAPRO [Suspect]
     Active Substance: IRBESARTAN
     Indication: PRODUCT USED FOR UNKNOWN INDICATION
     Dosage: DOSE UNKNOWN
     Route: 048
  20. IRBESARTAN. [Concomitant]
     Active Substance: IRBESARTAN
  21. ESOMEPRAZOLE MAGNESIUM. [Concomitant]
     Active Substance: ESOMEPRAZOLE MAGNESIUM
  22. PROMETHAZINE-CODEINE SYRUP [Concomitant]
  23. TAMSULOSIN HCL [Concomitant]
     Active Substance: TAMSULOSIN
  24. METAXALONE. [Concomitant]
     Active Substance: METAXALONE
  25. SULFAMETHOXAZOLE- TRIME [Concomitant]
  26. CLONIDINE HCL [Concomitant]
     Active Substance: CLONIDINE HYDROCHLORIDE
  27. LENVIMA [Suspect]
     Active Substance: LENVATINIB
     Route: 048
     Dates: start: 2015, end: 201608
  28. LIDOCAINE. [Concomitant]
     Active Substance: LIDOCAINE
  29. NEXIUM [Concomitant]
     Active Substance: ESOMEPRAZOLE MAGNESIUM
  30. ZOFRAN [Concomitant]
     Active Substance: ONDANSETRON HYDROCHLORIDE
  31. LENVIMA [Suspect]
     Active Substance: LENVATINIB
     Route: 048
     Dates: start: 2016
  32. AMOXICILLIN. [Concomitant]
     Active Substance: AMOXICILLIN
  33. VALACYCLOVIR [Concomitant]
     Active Substance: VALACYCLOVIR HYDROCHLORIDE

REACTIONS (23)
  - Hypoaesthesia oral [Unknown]
  - Hypertension [Not Recovered/Not Resolved]
  - Tongue discolouration [Unknown]
  - Temperature intolerance [Unknown]
  - Nausea [Not Recovered/Not Resolved]
  - Dizziness [Recovered/Resolved]
  - Diarrhoea [Unknown]
  - Fatigue [Unknown]
  - Herpes zoster [Unknown]
  - Alopecia [Unknown]
  - Dry skin [Unknown]
  - Decreased appetite [Unknown]
  - Blood pressure fluctuation [Unknown]
  - Lip swelling [Recovered/Resolved]
  - Weight decreased [Unknown]
  - Pruritus [Unknown]
  - Vomiting [Unknown]
  - Squamous cell carcinoma of skin [Unknown]
  - Cerebrovascular accident [Not Recovered/Not Resolved]
  - Central nervous system lesion [Unknown]
  - Tongue blistering [Unknown]
  - Dysphonia [Unknown]
  - Flatulence [Not Recovered/Not Resolved]

NARRATIVE: CASE EVENT DATE: 2015
